FAERS Safety Report 5287569-2 (Version None)
Quarter: 2007Q1

REPORT INFORMATION
  Report Type: 
  Country: None (occurrence: None)
  Receive Date: 20070126
  Receipt Date: 20050610
  Transmission Date: 20070707
  Serious: No
  Sender: FDA-Public Use
  Company Number: 2006CT001089

PATIENT
  Age: 54 Year
  Sex: Female
  Weight: 97.1 kg

DRUGS (9)
  1. VENTAVIS [Suspect]
     Indication: COR PULMONALE CHRONIC
     Dosage: 2.5 UG; 6XD; INH
     Route: 055
     Dates: start: 20050527, end: 20050601
  2. LASIX [Concomitant]
  3. ENULOSE [Concomitant]
  4. FOLIC ACID [Concomitant]
  5. ASPIRIN [Concomitant]
  6. SPIRONOLACTONE [Concomitant]
  7. ATENOLOL [Concomitant]
  8. PANTOPRAZOLE [Concomitant]
  9. THIAMINE HCL [Concomitant]

REACTIONS (4)
  - FACIAL PAIN [None]
  - HEADACHE [None]
  - NASAL DISCOMFORT [None]
  - PAIN [None]
